FAERS Safety Report 8428276-4 (Version None)
Quarter: 2012Q2

REPORT INFORMATION
  Report Type: 
  Country: None (occurrence: None)
  Receive Date: 20120611
  Receipt Date: 20120606
  Transmission Date: 20120825
  Serious: Yes (Hospitalization)
  Sender: FDA-Public Use
  Company Number: SG-MERCK-1205USA02025

PATIENT
  Age: 83 Year
  Sex: Male

DRUGS (2)
  1. INSULIN [Concomitant]
     Indication: DIABETES MELLITUS
     Route: 065
  2. INVANZ [Suspect]
     Indication: CHOLANGITIS
     Route: 030
     Dates: start: 20120504, end: 20120508

REACTIONS (5)
  - CIRCADIAN RHYTHM SLEEP DISORDER [None]
  - SOMNOLENCE [None]
  - CONFUSIONAL STATE [None]
  - FOOD AVERSION [None]
  - LETHARGY [None]
